FAERS Safety Report 6266735-3 (Version None)
Quarter: 2009Q3

REPORT INFORMATION
  Report Type: 
  Country: None (occurrence: None)
  Receive Date: 20090714
  Receipt Date: 20070628
  Transmission Date: 20100115
  Serious: Yes (Other)
  Sender: FDA-Public Use
  Company Number: US-ASTRAZENECA-2006UW25325

PATIENT
  Age: 15408 Day
  Sex: Male
  Weight: 100.2 kg

DRUGS (20)
  1. SEROQUEL [Suspect]
     Indication: BIPOLAR DISORDER
     Route: 048
     Dates: start: 20010101, end: 20060101
  2. SEROQUEL [Suspect]
     Dosage: 20MG TO 300MG
     Route: 048
     Dates: start: 20010816
  3. RISPERDAL [Concomitant]
     Dosage: 2MG TO 3MG
     Route: 048
  4. PROZAC [Concomitant]
  5. PROZAC [Concomitant]
     Dosage: 20MG TO 40MG
     Route: 048
  6. ZETIA [Concomitant]
     Route: 048
  7. VALIUM [Concomitant]
     Route: 048
  8. VICODIN [Concomitant]
     Route: 048
  9. GLUCOPHAGE [Concomitant]
     Route: 048
  10. COZAAR [Concomitant]
     Dosage: 25MG TO 50MG
     Route: 048
  11. TIAZAC [Concomitant]
     Route: 048
  12. DEPAKOTE [Concomitant]
     Dosage: 250MG TO 500MG
     Route: 048
  13. KLONOPIN [Concomitant]
     Dosage: 0.5MG TO 1MG
     Route: 048
  14. XANAX [Concomitant]
     Dosage: 1MG TO 2.5MG
     Route: 048
  15. FAMOTIDINE [Concomitant]
     Route: 048
  16. LANTUS [Concomitant]
     Dosage: 55MG TO 90MG
     Route: 058
  17. HYDROCHLOROTHIAZIDE [Concomitant]
     Route: 048
  18. LISINOPRIL [Concomitant]
     Route: 048
  19. AMITRIPTYLINE [Concomitant]
     Dosage: 10MG TO 50MG
     Route: 048
  20. CYCLOBENZAPRINE [Concomitant]
     Route: 048

REACTIONS (2)
  - DIABETIC NEUROPATHY [None]
  - INSULIN-REQUIRING TYPE 2 DIABETES MELLITUS [None]
